FAERS Safety Report 21763204 (Version 1)
Quarter: 2022Q4

REPORT INFORMATION
  Report Type: Spontaneous
  Country: US (occurrence: None)
  Receive Date: 20221221
  Receipt Date: 20221221
  Transmission Date: 20230113
  Serious: Yes (Hospitalization)
  Sender: FDA-Public Use
  Company Number: None

PATIENT
  Age: 80 Year
  Sex: Male
  Weight: 82.5 kg

DRUGS (5)
  1. CYCLOPHOSPHAMIDE [Suspect]
     Active Substance: CYCLOPHOSPHAMIDE
     Dates: end: 20151006
  2. DOXORUBICIN HYDROCHLORIDE [Suspect]
     Active Substance: DOXORUBICIN HYDROCHLORIDE
     Dates: end: 20151006
  3. PREDNISONE [Suspect]
     Active Substance: PREDNISONE
     Dates: end: 20151006
  4. RITUXIMAB [Suspect]
     Active Substance: RITUXIMAB
     Dates: end: 20151006
  5. VINCRISTINE SULFATE [Suspect]
     Active Substance: VINCRISTINE SULFATE
     Dates: end: 20151006

REACTIONS (5)
  - Fatigue [None]
  - Weight decreased [None]
  - Dyspnoea [None]
  - Anaemia [None]
  - Reticulocyte count decreased [None]

NARRATIVE: CASE EVENT DATE: 20211110
